FAERS Safety Report 14479265 (Version 3)
Quarter: 2018Q3

REPORT INFORMATION
  Report Type: Spontaneous
  Country: JP (occurrence: JP)
  Receive Date: 20180202
  Receipt Date: 20180704
  Transmission Date: 20181010
  Serious: Yes (Death, Life-Threatening, Other)
  Sender: FDA-Public Use
  Company Number: JP-ASTRAZENECA-2018SE10654

PATIENT
  Age: 74 Year
  Sex: Male
  Weight: 47 kg

DRUGS (12)
  1. BAKTAR [Concomitant]
     Active Substance: SULFAMETHOXAZOLE\TRIMETHOPRIM
     Indication: NON-SMALL CELL LUNG CANCER
     Route: 048
     Dates: start: 20180111, end: 20180123
  2. TRAMCET [Concomitant]
     Active Substance: ACETAMINOPHEN\TRAMADOL
     Indication: NON-SMALL CELL LUNG CANCER
     Route: 048
     Dates: start: 20171116, end: 20180123
  3. NAUZELIN [Concomitant]
     Active Substance: DOMPERIDONE
     Indication: NON-SMALL CELL LUNG CANCER
     Route: 048
     Dates: start: 20171108, end: 20180123
  4. TAKEPRON [Concomitant]
     Active Substance: LANSOPRAZOLE
     Indication: NON-SMALL CELL LUNG CANCER
     Route: 048
     Dates: start: 20160824, end: 20180123
  5. PREDNISOLONE. [Concomitant]
     Active Substance: PREDNISOLONE
  6. URIEF [Concomitant]
     Active Substance: SILODOSIN
     Indication: NON-SMALL CELL LUNG CANCER
     Route: 048
     Dates: start: 201711, end: 20180123
  7. PROMAC [Concomitant]
     Active Substance: NITROFURANTOIN
     Indication: NON-SMALL CELL LUNG CANCER
     Route: 048
     Dates: start: 20180112, end: 20180123
  8. TAGRISSO [Suspect]
     Active Substance: OSIMERTINIB
     Indication: NON-SMALL CELL LUNG CANCER
     Route: 048
     Dates: start: 20170817, end: 20180123
  9. FLAVITAN [Concomitant]
     Active Substance: FLAVIN ADENINE DINUCLEOTIDE
     Indication: NON-SMALL CELL LUNG CANCER
     Route: 048
     Dates: end: 20180123
  10. METHYCOBAL [Concomitant]
     Active Substance: METHYLCOBALAMIN
     Indication: NON-SMALL CELL LUNG CANCER
     Route: 048
     Dates: end: 20180123
  11. PYDOXAL [Concomitant]
     Active Substance: PYRIDOXAL
     Indication: NON-SMALL CELL LUNG CANCER
     Route: 048
     Dates: end: 20180123
  12. E KEPPRA [Concomitant]
     Active Substance: LEVETIRACETAM
     Indication: NON-SMALL CELL LUNG CANCER
     Route: 048
     Dates: start: 20160824, end: 20180123

REACTIONS (7)
  - Malignant neoplasm progression [Fatal]
  - Cardiac arrest [Fatal]
  - Depressed level of consciousness [Unknown]
  - Skin ulcer [Not Recovered/Not Resolved]
  - Restlessness [Unknown]
  - Dysphagia [Unknown]
  - Pyoderma gangrenosum [Unknown]

NARRATIVE: CASE EVENT DATE: 201710
